FAERS Safety Report 10909679 (Version 1)
Quarter: 2015Q1

REPORT INFORMATION
  Report Type: Spontaneous
  Country: US (occurrence: US)
  Receive Date: 20150312
  Receipt Date: 20150312
  Transmission Date: 20150721
  Serious: No
  Sender: FDA-Public Use
  Company Number: US-SA-2014SA064941

PATIENT
  Age: 40 Year
  Sex: Male

DRUGS (1)
  1. NASACORT ALLERGY 24HR [Suspect]
     Active Substance: TRIAMCINOLONE ACETONIDE
     Indication: HYPERSENSITIVITY
     Dosage: 1 SPRAY IN EACH NOSTRIL??FREQUENCY: EVERY 3 TO 4 HOURS DOSE:1 UNIT(S)
     Route: 045
     Dates: start: 20140510, end: 20140512

REACTIONS (1)
  - Drug ineffective [Unknown]
